FAERS Safety Report 7760321-1 (Version None)
Quarter: 2011Q3

REPORT INFORMATION
  Report Type: 
  Country: None (occurrence: None)
  Receive Date: 20110919
  Receipt Date: 20110916
  Transmission Date: 20111222
  Serious: Yes (Other)
  Sender: FDA-Public Use
  Company Number: CA-BAYER-2011-087033

PATIENT
  Age: 2 Year
  Sex: Male
  Weight: 13 kg

DRUGS (4)
  1. ISOFLURANE [Concomitant]
     Indication: MAINTENANCE OF ANAESTHESIA
  2. GADAVIST [Suspect]
     Indication: NUCLEAR MAGNETIC RESONANCE IMAGING ABDOMINAL
     Dosage: 1.3 ML, ONCE
  3. SEVOFLURANE [Concomitant]
     Indication: SEDATION
  4. PROPOFOL [Concomitant]
     Indication: NUCLEAR MAGNETIC RESONANCE IMAGING ABDOMINAL

REACTIONS (3)
  - OXYGEN SATURATION DECREASED [None]
  - TACHYCARDIA [None]
  - PULMONARY OEDEMA [None]
